FAERS Safety Report 5953895-4 (Version None)
Quarter: 2008Q4

REPORT INFORMATION
  Report Type: 
  Country: None (occurrence: None)
  Receive Date: 20081114
  Receipt Date: 20081106
  Transmission Date: 20090506
  Serious: Yes (Other)
  Sender: FDA-Public Use
  Company Number: US-B.I. PHARMACEUTICALS,INC./RIDGEFIELD-2008-DE-06640GD

PATIENT
  Age: 73 Year
  Sex: Female

DRUGS (8)
  1. PRAMIPEXOLE DIHYDROCHLORIDE [Suspect]
     Indication: RESTLESS LEGS SYNDROME
  2. PRAMIPEXOLE DIHYDROCHLORIDE [Suspect]
     Dosage: 6MG
  3. DULOXETINE [Suspect]
     Indication: DEPRESSION
  4. SPIRONOLACTONE [Concomitant]
  5. TRIAMTERENE AND HYDROCHLOROTHIAZIDE [Concomitant]
  6. RABEPRAZOLE SODIUM [Concomitant]
  7. LEVOTHYROXINE SODIUM [Concomitant]
     Indication: HYPOTHYROIDISM
  8. RISEDRONATE SODIUM [Concomitant]

REACTIONS (6)
  - CONDITION AGGRAVATED [None]
  - DRUG INEFFECTIVE [None]
  - FALL [None]
  - MULTIPLE FRACTURES [None]
  - REBOUND EFFECT [None]
  - SUDDEN ONSET OF SLEEP [None]
